FAERS Safety Report 5221525-5 (Version None)
Quarter: 2007Q1

REPORT INFORMATION
  Report Type: 
  Country: None (occurrence: None)
  Receive Date: 20070126
  Receipt Date: 20070123
  Transmission Date: 20070707
  Serious: Yes (Life-Threatening, Hospitalization)
  Sender: FDA-Public Use
  Company Number: FR-PFIZER INC-2007006307

PATIENT
  Sex: Female

DRUGS (5)
  1. SU-011,248 [Suspect]
     Indication: RENAL CELL CARCINOMA STAGE UNSPECIFIED
     Route: 048
     Dates: start: 20051121, end: 20051218
  2. SU-011,248 [Suspect]
     Route: 048
     Dates: start: 20060103, end: 20070110
  3. LEVOTHYROXINE SODIUM [Concomitant]
     Route: 048
  4. NOCTRAN 10 [Concomitant]
     Route: 048
     Dates: start: 20050301
  5. SPASFON [Concomitant]
     Route: 048
     Dates: start: 20060501

REACTIONS (4)
  - EJECTION FRACTION DECREASED [None]
  - HEPATIC FAILURE [None]
  - RENAL FAILURE ACUTE [None]
  - RHABDOMYOLYSIS [None]
